FAERS Safety Report 4610305-7 (Version None)
Quarter: 2005Q1

REPORT INFORMATION
  Report Type: 
  Country: None (occurrence: None)
  Receive Date: 20050314
  Receipt Date: 20050301
  Transmission Date: 20050727
  Serious: Yes (Hospitalization, Disabling, Other)
  Sender: FDA-Public Use
  Company Number: 2005024622

PATIENT
  Age: 53 Year
  Sex: Male
  Weight: 181.4388 kg

DRUGS (2)
  1. CELEBREX [Suspect]
     Indication: ARTHRITIS
     Dosage: 800 MG (400 MG, 2 IN 1 D), ORAL
     Route: 048
     Dates: start: 20020201
  2. ALL OTHER THERAPEUTIC PRODUCTS (ALL OTHER THERAPEUTIC PRODUCTS) [Concomitant]

REACTIONS (19)
  - ABASIA [None]
  - ASTHENIA [None]
  - BLINDNESS [None]
  - CARPAL TUNNEL SYNDROME [None]
  - CATARACT [None]
  - CHEST PAIN [None]
  - CORONARY ARTERY OCCLUSION [None]
  - DEAFNESS UNILATERAL [None]
  - DECUBITUS ULCER [None]
  - DELIRIUM [None]
  - DIABETIC RETINOPATHY [None]
  - DISEASE PROGRESSION [None]
  - EYE HAEMORRHAGE [None]
  - FEAR [None]
  - MYOCARDIAL INFARCTION [None]
  - POST PROCEDURAL COMPLICATION [None]
  - TREATMENT NONCOMPLIANCE [None]
  - VISION BLURRED [None]
  - WOUND INFECTION [None]
